FAERS Safety Report 4756224-7 (Version None)
Quarter: 2005Q3

REPORT INFORMATION
  Report Type: 
  Country: None (occurrence: None)
  Receive Date: 20050830
  Receipt Date: 20050505
  Transmission Date: 20060218
  Serious: Yes (Other)
  Sender: FDA-Public Use
  Company Number: US-GLAXOSMITHKLINE-A0557818A

PATIENT
  Age: 24 Year
  Sex: Female
  Weight: 60 kg

DRUGS (2)
  1. WELLBUTRIN XL [Suspect]
     Indication: DEPRESSION
     Route: 048
     Dates: start: 20041125, end: 20050427
  2. ALCOHOL [Concomitant]

REACTIONS (5)
  - AMNESIA [None]
  - COMPLEX PARTIAL SEIZURES [None]
  - DEPERSONALISATION [None]
  - FATIGUE [None]
  - PETIT MAL EPILEPSY [None]
